FAERS Safety Report 10404648 (Version 1)
Quarter: 2014Q2

REPORT INFORMATION
  Report Type: Spontaneous
  Country: US (occurrence: None)
  Receive Date: 20140530
  Receipt Date: 20140530
  Transmission Date: 20141212
  Serious: Yes (Other)
  Sender: FDA-Public Use
  Company Number: 428229USA

PATIENT
  Age: 54 Year
  Sex: Female

DRUGS (7)
  1. FENOFIBRATE [Suspect]
     Route: 048
     Dates: start: 2012
  2. JANTOVEN [Suspect]
     Indication: AORTIC VALVE REPLACEMENT
     Dosage: 7.5 MG QD 5 D/WK AND 3.75 MG QD 2 D/WK,ORAL
     Route: 048
     Dates: start: 20130703, end: 20130711
  3. BABY ASPIRIN [Concomitant]
  4. LEVOTHYROXINE [Concomitant]
  5. TRAMADOL [Concomitant]
  6. TYLENOL [Concomitant]
  7. PSYLLIUM HYDROPHILIC MUCILLOID [Concomitant]

REACTIONS (3)
  - International normalised ratio increased [None]
  - Drug interaction [None]
  - Incorrect dose administered [None]
